FAERS Safety Report 10070798 (Version 2)
Quarter: 2014Q2

REPORT INFORMATION
  Report Type: Spontaneous
  Country: DK (occurrence: DK)
  Receive Date: 20140410
  Receipt Date: 20140416
  Transmission Date: 20141212
  Serious: Yes (Life-Threatening, Hospitalization, Other)
  Sender: FDA-Public Use
  Company Number: PHHY2014DK042311

PATIENT
  Age: 11 Year
  Sex: Female
  Weight: 31 kg

DRUGS (3)
  1. RITALIN [Suspect]
     Indication: ATTENTION DEFICIT/HYPERACTIVITY DISORDER
     Dosage: 10 MG (1 PLUS 1PLUS 1/2)
     Route: 048
     Dates: start: 20131122, end: 20131214
  2. SERTRALIN BLUEFISH [Interacting]
     Indication: OBSESSIVE-COMPULSIVE DISORDER
     Dosage: 75 MG, QD
     Route: 048
     Dates: start: 20130523
  3. MEDIKINET//METHYLPHENIDATE HYDROCHLORIDE [Suspect]
     Indication: ATTENTION DEFICIT/HYPERACTIVITY DISORDER
     Dosage: UNK (STRENGTH 5MG AND 10 MG)
     Route: 048

REACTIONS (4)
  - Suicide attempt [Not Recovered/Not Resolved]
  - Obsessive thoughts [Not Recovered/Not Resolved]
  - Obsessive-compulsive disorder [Not Recovered/Not Resolved]
  - Drug interaction [Not Recovered/Not Resolved]
